FAERS Safety Report 8790529 (Version 1)
Quarter: 2012Q4

REPORT INFORMATION
  Report Type: Spontaneous
  Country: IT (occurrence: None)
  Receive Date: 20120828
  Receipt Date: 20120828
  Transmission Date: 20130627
  Serious: Yes (Other)
  Sender: FDA-Public Use
  Company Number: 2012033183

PATIENT

DRUGS (1)
  1. IMMUNOGLOBULIN [Suspect]
     Indication: RHESUS HAEMOLYTIC DISEASE OF NEWBORN

REACTIONS (1)
  - Necrotising colitis [None]
